FAERS Safety Report 10066763 (Version 1)
Quarter: 2014Q2

REPORT INFORMATION
  Report Type: Spontaneous
  Country: US (occurrence: US)
  Receive Date: 20140408
  Receipt Date: 20140408
  Transmission Date: 20141212
  Serious: Yes (Hospitalization)
  Sender: FDA-Public Use
  Company Number: US-DSJP-DSU-2014-103712

PATIENT
  Sex: 0

DRUGS (8)
  1. AZOR [Suspect]
     Indication: HYPERTENSION
     Dosage: 5/20 MG, QD
     Route: 048
     Dates: end: 20140401
  2. CELEBREX [Suspect]
     Indication: PAIN
     Dosage: UNK, PRN
     Route: 048
     Dates: start: 201403
  3. OXYCODONE [Suspect]
     Indication: PAIN
     Dosage: UNK, PRN
     Route: 048
     Dates: start: 201403
  4. ASPIRIN [Suspect]
     Indication: PAIN
     Dosage: 325 MG, QD
     Route: 048
     Dates: start: 201403
  5. LIPITOR [Concomitant]
     Indication: BLOOD CHOLESTEROL INCREASED
     Dosage: UNK
     Route: 065
     Dates: end: 2014
  6. TOPROL [Concomitant]
     Indication: PRODUCT USED FOR UNKNOWN INDICATION
     Dosage: 50 MG, UNK
     Route: 065
     Dates: end: 2014
  7. TOPROL [Concomitant]
     Dosage: 25 UNK, UNK
     Route: 048
     Dates: start: 2014
  8. DEXLANSOPRAZOLE [Concomitant]
     Indication: PRODUCT USED FOR UNKNOWN INDICATION
     Dosage: UNK
     Route: 065

REACTIONS (8)
  - Stent placement [Recovered/Resolved]
  - Knee arthroplasty [Recovered/Resolved]
  - Drug interaction [Unknown]
  - Insomnia [Not Recovered/Not Resolved]
  - Feeling abnormal [Not Recovered/Not Resolved]
  - Dizziness [Not Recovered/Not Resolved]
  - Hypotension [Not Recovered/Not Resolved]
  - Pollakiuria [Not Recovered/Not Resolved]
